FAERS Safety Report 6579793-3 (Version None)
Quarter: 2010Q1

REPORT INFORMATION
  Report Type: 
  Country: None (occurrence: None)
  Receive Date: 20100212
  Receipt Date: 20100209
  Transmission Date: 20100710
  Serious: Yes (Hospitalization, Other)
  Sender: FDA-Public Use
  Company Number: CN-ROCHE-682144

PATIENT
  Age: 46 Year
  Sex: Male

DRUGS (2)
  1. PEG-INTERFERON ALFA 2A (RO 25-8310) [Suspect]
     Indication: HEPATITIS B
     Dosage: STRENGTH WAS REPORTED AS 180 UG.
     Route: 058
     Dates: start: 20091119, end: 20091205
  2. PEG-INTERFERON ALFA 2A (RO 25-8310) [Suspect]
     Dosage: STRENGTH WAS REPORTED AS 135 UG.
     Route: 058
     Dates: start: 20091205

REACTIONS (3)
  - NEUTROPHIL COUNT DECREASED [None]
  - VERTIGO [None]
  - VISUAL ACUITY REDUCED [None]
